FAERS Safety Report 10491195 (Version 1)
Quarter: 2014Q4

REPORT INFORMATION
  Report Type: Spontaneous
  Country: US (occurrence: US)
  Receive Date: 20141002
  Receipt Date: 20141002
  Transmission Date: 20150528
  Serious: No
  Sender: FDA-Public Use
  Company Number: US-GLAXOSMITHKLINE-A1049079A

PATIENT
  Sex: Female

DRUGS (3)
  1. ADVAIR HFA [Suspect]
     Active Substance: FLUTICASONE PROPIONATE\SALMETEROL XINAFOATE
     Indication: CHRONIC OBSTRUCTIVE PULMONARY DISEASE
     Dosage: 1PUFF PER DAY
     Route: 055
     Dates: start: 200609
  2. NORVASC [Concomitant]
     Active Substance: AMLODIPINE BESYLATE
  3. SPIRIVA [Concomitant]
     Active Substance: TIOTROPIUM BROMIDE MONOHYDRATE

REACTIONS (10)
  - Oral pain [Unknown]
  - Gingival disorder [Unknown]
  - Toothache [Unknown]
  - Tooth loss [Unknown]
  - Tooth disorder [Unknown]
  - Tooth extraction [Unknown]
  - Denture wearer [Unknown]
  - Dental prosthesis placement [Unknown]
  - Dental caries [Not Recovered/Not Resolved]
  - Tooth repair [Unknown]

NARRATIVE: CASE EVENT DATE: 2009
